FAERS Safety Report 25083310 (Version 1)
Quarter: 2025Q1

REPORT INFORMATION
  Report Type: Report from Study
  Country: US (occurrence: US)
  Receive Date: 20250317
  Receipt Date: 20250317
  Transmission Date: 20250409
  Serious: Yes (Other)
  Sender: ALEXION PHARMACEUTICALS
  Company Number: US-AstraZeneca-CH-00825134A

PATIENT

DRUGS (1)
  1. TEZEPELUMAB [Suspect]
     Active Substance: TEZEPELUMAB
     Route: 065

REACTIONS (5)
  - Sinus disorder [Unknown]
  - Dry mouth [Unknown]
  - Dysphonia [Unknown]
  - Myalgia [Unknown]
  - Allergy to animal [Unknown]
